FAERS Safety Report 20189881 (Version 1)
Quarter: 2021Q4

REPORT INFORMATION
  Report Type: Spontaneous
  Country: US (occurrence: None)
  Receive Date: 20211215
  Receipt Date: 20211215
  Transmission Date: 20220303
  Serious: No
  Sender: FDA-Public Use
  Company Number: None

PATIENT
  Age: 51 Year
  Sex: Female
  Weight: 73.3 kg

DRUGS (10)
  1. CARBOPLATIN [Suspect]
     Active Substance: CARBOPLATIN
     Indication: Breast cancer
     Dosage: OTHER FREQUENCY : EVERY 21 DAYS;?
     Route: 042
     Dates: start: 20211026
  2. APREPITANT [Concomitant]
     Active Substance: APREPITANT
     Dates: start: 20211026
  3. PALONOSETRON [Concomitant]
     Active Substance: PALONOSETRON
     Dates: start: 20211026
  4. DEXAMETHASONE [Concomitant]
     Active Substance: DEXAMETHASONE
     Dates: start: 20211026
  5. PEMBROLIZUMAB [Concomitant]
     Active Substance: PEMBROLIZUMAB
     Dates: start: 20211026
  6. GEMCITABINE [Concomitant]
     Active Substance: GEMCITABINE
     Dates: start: 20211026
  7. DENOSUMAB [Concomitant]
     Active Substance: DENOSUMAB
     Dates: start: 20211026
  8. PEGFILGRASTIM [Concomitant]
     Active Substance: PEGFILGRASTIM
     Dates: start: 20211102
  9. FAMOTIDINE [Concomitant]
     Active Substance: FAMOTIDINE
     Dates: start: 20211102
  10. ERYTHROPOIETIN [Concomitant]
     Active Substance: ERYTHROPOIETIN
     Dates: start: 20211123

REACTIONS (4)
  - Pruritus [None]
  - Palmar erythema [None]
  - Chest pain [None]
  - Therapy interrupted [None]

NARRATIVE: CASE EVENT DATE: 20211207
